FAERS Safety Report 9175559 (Version 1)
Quarter: 2013Q1

REPORT INFORMATION
  Report Type: Spontaneous
  Country: PL (occurrence: PL)
  Receive Date: 20130320
  Receipt Date: 20130320
  Transmission Date: 20140127
  Serious: Yes (Hospitalization, Other)
  Sender: FDA-Public Use
  Company Number: PL-ABBOTT-13P-129-1064989-00

PATIENT
  Age: 59 Year
  Sex: Male
  Weight: 112 kg

DRUGS (1)
  1. HUMIRA [Suspect]
     Indication: PSORIASIS
     Route: 058
     Dates: start: 201008, end: 20120808

REACTIONS (4)
  - Erythema [Unknown]
  - Pruritus [Unknown]
  - Urticaria [Unknown]
  - Hypersensitivity [Unknown]
